FAERS Safety Report 13817641 (Version 1)
Quarter: 2017Q3

REPORT INFORMATION
  Report Type: Report from Study
  Country: US (occurrence: US)
  Receive Date: 20170731
  Receipt Date: 20170731
  Transmission Date: 20171127
  Serious: Yes (Hospitalization, Other)
  Sender: FDA-Public Use
  Company Number: PHHY2017US057601

PATIENT
  Age: 61 Year
  Sex: Female
  Weight: 58.6 kg

DRUGS (10)
  1. BLINDED ETANERCEPT [Suspect]
     Active Substance: ETANERCEPT
     Indication: RHEUMATOID ARTHRITIS
     Dosage: CODE NOT BROKEN
     Route: 058
     Dates: start: 20160511
  2. CEPHALEXIN. [Concomitant]
     Active Substance: CEPHALEXIN
     Indication: PRODUCT USED FOR UNKNOWN INDICATION
     Dosage: 250 MG, Q6H
     Route: 065
  3. BLINDED NO TREATMENT RECEIVED [Suspect]
     Active Substance: INVESTIGATIONAL PRODUCT
     Indication: RHEUMATOID ARTHRITIS
     Dosage: CODE NOT BROKEN
     Route: 058
     Dates: start: 20160511
  4. FOLIC ACID. [Concomitant]
     Active Substance: FOLIC ACID
     Indication: PROPHYLAXIS
     Dosage: 1 MG, QD
     Route: 048
     Dates: start: 20150911
  5. FOLIC ACID. [Concomitant]
     Active Substance: FOLIC ACID
     Indication: RHEUMATOID ARTHRITIS
  6. ENBREL [Concomitant]
     Active Substance: ETANERCEPT
     Indication: RHEUMATOID ARTHRITIS
     Dosage: UNK
     Route: 065
  7. TRIMETHOPRIM SULFAMETHOXAZOLE [Concomitant]
     Active Substance: SULFAMETHOXAZOLE\TRIMETHOPRIM
     Indication: PRODUCT USED FOR UNKNOWN INDICATION
     Dosage: 1 DF(TAB), BID
     Route: 048
  8. BLINDED GP2015 [Suspect]
     Active Substance: INVESTIGATIONAL BIOSIMILARS
     Indication: RHEUMATOID ARTHRITIS
     Dosage: CODE NOT BROKEN
     Route: 058
     Dates: start: 20160511
  9. METHOTREXATE. [Concomitant]
     Active Substance: METHOTREXATE
     Indication: RHEUMATOID ARTHRITIS
     Dosage: 15 MG, QW
     Route: 058
     Dates: start: 20150911
  10. IBUPROFEN. [Concomitant]
     Active Substance: IBUPROFEN
     Indication: RHEUMATOID ARTHRITIS
     Dosage: 200 MG, TID
     Route: 048
     Dates: start: 201502

REACTIONS (1)
  - Osteomyelitis [Recovering/Resolving]

NARRATIVE: CASE EVENT DATE: 20170309
